FAERS Safety Report 16986992 (Version 1)
Quarter: 2019Q4

REPORT INFORMATION
  Report Type: Spontaneous
  Country: US (occurrence: US)
  Receive Date: 20191017
  Receipt Date: 20191017
  Transmission Date: 20200122
  Serious: Yes (Life-Threatening, Hospitalization)
  Sender: FDA-Public Use
  Company Number: None

PATIENT
  Age: 10 Year
  Sex: Female
  Weight: 19.5 kg

DRUGS (3)
  1. PROPOFOL. [Suspect]
     Active Substance: PROPOFOL
  2. HEPARIN [Suspect]
     Active Substance: HEPARIN SODIUM
  3. NORMAL SALINE [Suspect]
     Active Substance: SODIUM CHLORIDE

REACTIONS (3)
  - Staphylococcal sepsis [None]
  - Tachycardia [None]
  - Pain [None]

NARRATIVE: CASE EVENT DATE: 20190831
